FAERS Safety Report 25267999 (Version 3)
Quarter: 2025Q4

REPORT INFORMATION
  Report Type: Report from Study
  Country: CA (occurrence: CA)
  Receive Date: 20250505
  Receipt Date: 20251110
  Transmission Date: 20260118
  Serious: Yes (Other)
  Sender: CSL BEHRING
  Company Number: CA-BEH-2025200156

PATIENT
  Age: 69 Year
  Sex: Female
  Weight: 79.365 kg

DRUGS (2)
  1. HIZENTRA [Suspect]
     Active Substance: HUMAN IMMUNOGLOBULIN G
     Indication: Secondary immunodeficiency
     Dosage: STRENGTH 12 G, QW
     Route: 065
     Dates: start: 20170911
  2. HIZENTRA [Suspect]
     Active Substance: HUMAN IMMUNOGLOBULIN G
     Dosage: 12 G, QW
     Route: 058
     Dates: start: 20170911

REACTIONS (17)
  - Haemorrhage [Unknown]
  - Skin injury [Unknown]
  - Visual impairment [Unknown]
  - Weight decreased [Unknown]
  - Needle issue [Unknown]
  - Device leakage [Unknown]
  - Incorrect dose administered [Unknown]
  - Device physical property issue [Unknown]
  - Illness [Unknown]
  - Weight decreased [Unknown]
  - Wrong technique in product usage process [Unknown]
  - Infusion site discharge [Unknown]
  - Skin injury [Unknown]
  - Arthralgia [Unknown]
  - Fatigue [Unknown]
  - Injection site haemorrhage [Unknown]
  - Weight decreased [Unknown]
